FAERS Safety Report 22217629 (Version 2)
Quarter: 2023Q2

REPORT INFORMATION
  Report Type: Spontaneous
  Country: US (occurrence: US)
  Receive Date: 20230417
  Receipt Date: 20230530
  Transmission Date: 20230721
  Serious: Yes (Other)
  Sender: FDA-Public Use
  Company Number: US-GSKCCFUS-Case-01676408_AE-94564

PATIENT

DRUGS (1)
  1. TRELEGY ELLIPTA [Suspect]
     Active Substance: FLUTICASONE FUROATE\UMECLIDINIUM BROMIDE\VILANTEROL TRIFENATATE
     Indication: Product used for unknown indication
     Dosage: UNK 100/62.5/25 MCG
     Route: 055

REACTIONS (6)
  - Choking [Unknown]
  - Aspiration [Unknown]
  - Rhinorrhoea [Unknown]
  - Cough [Unknown]
  - Incorrect dose administered [Unknown]
  - Product complaint [Unknown]
